FAERS Safety Report 11793572 (Version 1)
Quarter: 2015Q4

REPORT INFORMATION
  Report Type: Spontaneous
  Country: US (occurrence: US)
  Receive Date: 20151202
  Receipt Date: 20151202
  Transmission Date: 20160305
  Serious: No
  Sender: FDA-Public Use
  Company Number: US-IROKO PHARMACEUTICALS LLC-US-I09001-15-00093

PATIENT
  Age: 70 Year
  Sex: Female

DRUGS (4)
  1. NORVASC [Suspect]
     Active Substance: AMLODIPINE BESYLATE
     Indication: PRODUCT USED FOR UNKNOWN INDICATION
     Route: 065
  2. ZORVOLEX [Suspect]
     Active Substance: DICLOFENAC
     Indication: SPONDYLITIS
     Route: 048
     Dates: start: 20150615, end: 201506
  3. COZAAR [Suspect]
     Active Substance: LOSARTAN POTASSIUM
     Indication: PRODUCT USED FOR UNKNOWN INDICATION
     Route: 065
  4. ZORVOLEX [Suspect]
     Active Substance: DICLOFENAC
     Indication: HEADACHE
     Route: 048
     Dates: start: 201506, end: 201506

REACTIONS (1)
  - Tinnitus [Unknown]

NARRATIVE: CASE EVENT DATE: 201506
